FAERS Safety Report 7605601-5 (Version None)
Quarter: 2011Q3

REPORT INFORMATION
  Report Type: 
  Country: None (occurrence: None)
  Receive Date: 20110713
  Receipt Date: 20110630
  Transmission Date: 20111222
  Serious: Yes (Hospitalization)
  Sender: FDA-Public Use
  Company Number: IN-BAYER-2011-056751

PATIENT
  Age: 35 Year
  Sex: Male

DRUGS (8)
  1. RIFAMPICIN [Suspect]
     Indication: PULMONARY TUBERCULOSIS
     Dosage: 600 MG, UNK
     Dates: start: 20110623, end: 20110628
  2. DEFCORT [Concomitant]
     Dosage: DAILY DOSE 7.5 MG
     Route: 048
     Dates: start: 20110620, end: 20110625
  3. MOXIFLOXACIN [Suspect]
     Indication: PULMONARY TUBERCULOSIS
     Dosage: 400 MG, UNK
     Dates: start: 20110623, end: 20110628
  4. BUDECORT [Concomitant]
     Indication: COUGH
     Route: 055
  5. ISONIAZID [Suspect]
     Indication: PULMONARY TUBERCULOSIS
     Dosage: 300 MG, UNK
     Dates: start: 20110623, end: 20110628
  6. ALBUTEROL [Concomitant]
     Indication: COUGH
     Route: 055
  7. PYRAZINAMIDE [Suspect]
     Indication: PULMONARY TUBERCULOSIS
     Dosage: 2000 MG, UNK
     Dates: start: 20110623, end: 20110628
  8. FAROPENEM [Concomitant]
     Dosage: DAILY DOSE 200 MG
     Route: 048
     Dates: start: 20110620, end: 20110623

REACTIONS (1)
  - ATRIAL TACHYCARDIA [None]
